FAERS Safety Report 12231562 (Version 2)
Quarter: 2016Q2

REPORT INFORMATION
  Report Type: Report from Study
  Country: US (occurrence: US)
  Receive Date: 20160401
  Receipt Date: 20160406
  Transmission Date: 20160815
  Serious: Yes (Other)
  Sender: FDA-Public Use
  Company Number: US-AMGEN-USASL2016039041

PATIENT
  Age: 74 Year
  Sex: Male

DRUGS (2)
  1. ENBREL [Suspect]
     Active Substance: ETANERCEPT
     Indication: PSORIASIS
  2. ENBREL [Suspect]
     Active Substance: ETANERCEPT
     Indication: PSORIATIC ARTHROPATHY
     Dosage: 25 MG, 2 TIMES/WK
     Route: 065
     Dates: start: 20060605, end: 2016

REACTIONS (7)
  - Arthralgia [Unknown]
  - Cataract operation [Unknown]
  - Contusion [Not Recovered/Not Resolved]
  - Pain [Unknown]
  - Psoriasis [Unknown]
  - Hand deformity [Unknown]
  - Fall [Unknown]

NARRATIVE: CASE EVENT DATE: 2016
